FAERS Safety Report 16018585 (Version 1)
Quarter: 2019Q1

REPORT INFORMATION
  Report Type: Spontaneous
  Country: DK (occurrence: DK)
  Receive Date: 20190228
  Receipt Date: 20190228
  Transmission Date: 20190418
  Serious: Yes (Hospitalization)
  Sender: FDA-Public Use
  Company Number: DK-ELI_LILLY_AND_COMPANY-DK201902011633

PATIENT
  Age: 53 Year
  Sex: Male

DRUGS (2)
  1. CYMBALTA [Suspect]
     Active Substance: DULOXETINE HYDROCHLORIDE
     Dosage: 30 MG, DAILY
     Route: 065
     Dates: start: 20190122, end: 20190128
  2. CYMBALTA [Suspect]
     Active Substance: DULOXETINE HYDROCHLORIDE
     Indication: DEPRESSION
     Dosage: 90 MG, DAILY
     Route: 065

REACTIONS (5)
  - Joint injury [Unknown]
  - Depressed mood [Unknown]
  - Tremor [Unknown]
  - Incorrect dose administered [Unknown]
  - Crying [Unknown]
